FAERS Safety Report 20746179 (Version 1)
Quarter: 2022Q2

REPORT INFORMATION
  Report Type: Spontaneous
  Country: US (occurrence: US)
  Receive Date: 20220425
  Receipt Date: 20220425
  Transmission Date: 20220721
  Serious: No
  Sender: FDA-Public Use
  Company Number: US-MIRM-000346

PATIENT
  Sex: Male

DRUGS (9)
  1. LIVMARLI [Suspect]
     Active Substance: MARALIXIBAT CHLORIDE
     Indication: Congenital hepatobiliary anomaly
     Route: 048
     Dates: start: 20220121
  2. 2930039 (GLOBALC3Sep19): Hydroxyzine [Concomitant]
  3. 1328878 (GLOBALC3Sep19): Vitamin E [Concomitant]
  4. 1328139 (GLOBALC3Sep19): Rifampin [Concomitant]
  5. 1776253 (GLOBALC3Sep19): Vitamin D [Concomitant]
  6. 1328777 (GLOBALC3Sep19): Ursodiol [Concomitant]
  7. 1268236 (GLOBALC3Sep19): Omeprazole [Concomitant]
  8. 1328916 (GLOBALC3Sep19): Vitamin K [Concomitant]
  9. 1329006 (GLOBALC3Sep19): Zofran [Concomitant]

REACTIONS (1)
  - Sinusitis [Unknown]
